FAERS Safety Report 5351359-2 (Version None)
Quarter: 2007Q2

REPORT INFORMATION
  Report Type: 
  Country: None (occurrence: None)
  Receive Date: 20070608
  Receipt Date: 20070530
  Transmission Date: 20071010
  Serious: Yes (Other)
  Sender: FDA-Public Use
  Company Number: HU-PFIZER INC-2007045016

PATIENT
  Age: 70 Year
  Sex: Male

DRUGS (7)
  1. LYRICA [Suspect]
     Indication: DIABETIC NEUROPATHY
     Route: 048
     Dates: start: 20070301, end: 20070530
  2. VALSARTAN [Concomitant]
     Route: 048
  3. CONCOR [Concomitant]
     Route: 048
  4. SIMVASTATIN [Concomitant]
     Route: 048
  5. INSULATARD [Concomitant]
     Route: 058
  6. FUROSEMIDE [Concomitant]
     Route: 048
  7. KALIUM-R [Concomitant]
     Route: 048

REACTIONS (4)
  - DIARRHOEA [None]
  - HYPERTENSION [None]
  - MENOPAUSAL SYMPTOMS [None]
  - VERTIGO [None]
